FAERS Safety Report 13544581 (Version 2)
Quarter: 2017Q2

REPORT INFORMATION
  Report Type: Report from Study
  Country: BR (occurrence: BR)
  Receive Date: 20170515
  Receipt Date: 20170518
  Transmission Date: 20170830
  Serious: Yes (Other)
  Sender: FDA-Public Use
  Company Number: PHHY2017BR069974

PATIENT
  Sex: Female
  Weight: 56 kg

DRUGS (2)
  1. TRILEPTAL [Suspect]
     Active Substance: OXCARBAZEPINE
     Dosage: 1500 MG, UNK
     Route: 048
     Dates: start: 2011
  2. TRILEPTAL [Suspect]
     Active Substance: OXCARBAZEPINE
     Indication: SEIZURE
     Dosage: 3 DF, QD
     Route: 048
     Dates: start: 200811

REACTIONS (11)
  - Diplopia [Recovered/Resolved]
  - Fatigue [Unknown]
  - Drug use disorder [Unknown]
  - Somnolence [Not Recovered/Not Resolved]
  - Procedural complication [Unknown]
  - Constipation [Unknown]
  - Abdominal discomfort [Unknown]
  - Decreased activity [Unknown]
  - Malaise [Unknown]
  - Tachycardia [Unknown]
  - Headache [Unknown]

NARRATIVE: CASE EVENT DATE: 2008
